FAERS Safety Report 9468617 (Version 1)
Quarter: 2013Q3

REPORT INFORMATION
  Report Type: Spontaneous
  Country: JP (occurrence: JP)
  Receive Date: 20130821
  Receipt Date: 20130821
  Transmission Date: 20140515
  Serious: Yes (Other)
  Sender: FDA-Public Use
  Company Number: JP-TEVA-426269ISR

PATIENT
  Sex: Male

DRUGS (4)
  1. CISPLATIN [Suspect]
     Route: 065
  2. METHOTREXATE SODIUM [Suspect]
     Route: 042
  3. DOXORUBICIN HCL [Suspect]
  4. VINBLASTINE SULFATE [Suspect]

REACTIONS (3)
  - Renal impairment [Unknown]
  - Neutrophil count decreased [Unknown]
  - Monocyte count increased [Unknown]
